APPROVED DRUG PRODUCT: AZO GANTRISIN
Active Ingredient: PHENAZOPYRIDINE HYDROCHLORIDE; SULFISOXAZOLE
Strength: 50MG;500MG **Federal Register determination that product was not discontinued or withdrawn for safety or effectiveness reasons**
Dosage Form/Route: TABLET;ORAL
Application: N019358 | Product #001
Applicant: HOFFMANN LA ROCHE INC
Approved: Aug 31, 1990 | RLD: Yes | RS: No | Type: DISCN